FAERS Safety Report 18253061 (Version 2)
Quarter: 2020Q3

REPORT INFORMATION
  Report Type: Spontaneous
  Country: US (occurrence: US)
  Receive Date: 20200910
  Receipt Date: 20200910
  Transmission Date: 20201103
  Serious: Yes (Other)
  Sender: FDA-Public Use
  Company Number: US-PFIZER INC-2020347746

PATIENT
  Age: 83 Year
  Sex: Female
  Weight: 56.7 kg

DRUGS (1)
  1. EXEMESTANE. [Suspect]
     Active Substance: EXEMESTANE
     Indication: HORMONE RECEPTOR POSITIVE BREAST CANCER
     Dosage: 25MG TAKEN WITH WATER ONCE A DAY AFTER BREAKFAST
     Dates: start: 20200728

REACTIONS (10)
  - Diarrhoea [Not Recovered/Not Resolved]
  - Aphonia [Unknown]
  - Appetite disorder [Unknown]
  - Feeling hot [Unknown]
  - Dysphonia [Unknown]
  - Dehydration [Not Recovered/Not Resolved]
  - Asthenia [Not Recovered/Not Resolved]
  - Dizziness [Not Recovered/Not Resolved]
  - Weight decreased [Not Recovered/Not Resolved]
  - Feeling abnormal [Not Recovered/Not Resolved]

NARRATIVE: CASE EVENT DATE: 202007
